FAERS Safety Report 10200981 (Version 1)
Quarter: 2014Q2

REPORT INFORMATION
  Report Type: Spontaneous
  Country: US (occurrence: US)
  Receive Date: 20140528
  Receipt Date: 20140528
  Transmission Date: 20141212
  Serious: Yes (Other)
  Sender: FDA-Public Use
  Company Number: PHEH2014US010572

PATIENT
  Sex: Male

DRUGS (1)
  1. TEKTURNA [Suspect]
     Indication: HYPERTENSION
     Dosage: 150 MG, QD
     Dates: start: 200704, end: 200802

REACTIONS (12)
  - Renal failure chronic [Unknown]
  - Renal impairment [Unknown]
  - Renal injury [Unknown]
  - Cerebrovascular accident [Unknown]
  - Disability [Unknown]
  - Terminal state [Unknown]
  - Pain [Unknown]
  - Blood potassium increased [Unknown]
  - Injury [Unknown]
  - Anxiety [Unknown]
  - Anhedonia [Unknown]
  - Hypotension [Unknown]
